FAERS Safety Report 4646429-8 (Version None)
Quarter: 2005Q2

REPORT INFORMATION
  Report Type: 
  Country: None (occurrence: None)
  Receive Date: 20050427
  Receipt Date: 20050124
  Transmission Date: 20051028
  Serious: No
  Sender: FDA-Public Use
  Company Number: US-GLAXOSMITHKLINE-A0541956A

PATIENT
  Age: 71 Year
  Sex: Male

DRUGS (5)
  1. SEREVENT [Suspect]
     Indication: ASTHMA
     Dosage: 1PUFF TWICE PER DAY
     Route: 055
     Dates: start: 19980101
  2. NEXIUM [Concomitant]
  3. NORVASC [Concomitant]
  4. LIPITOR [Concomitant]
  5. HYZAAR [Concomitant]

REACTIONS (1)
  - WHEEZING [None]
